FAERS Safety Report 21312353 (Version 1)
Quarter: 2022Q3

REPORT INFORMATION
  Report Type: Spontaneous
  Country: US (occurrence: None)
  Receive Date: 20220909
  Receipt Date: 20220909
  Transmission Date: 20221027
  Serious: No
  Sender: FDA-Public Use
  Company Number: US-FARMAPROD-202206-0996

PATIENT
  Sex: Female

DRUGS (29)
  1. OXERVATE [Suspect]
     Active Substance: CENEGERMIN-BKBJ
     Indication: Ulcerative keratitis
     Route: 047
     Dates: start: 20220407
  2. CARBIDOPA\LEVODOPA [Concomitant]
     Active Substance: CARBIDOPA\LEVODOPA
  3. AMANTADINE [Concomitant]
     Active Substance: AMANTADINE
  4. NOVOLOG [Concomitant]
     Active Substance: INSULIN ASPART
     Dosage: 100/ML VIAL
  5. GLUCOSAMIN-CHONDROITIN [Concomitant]
  6. BROMELAINS [Concomitant]
     Active Substance: BROMELAINS
  7. MENAQUINONE 6 [Concomitant]
     Active Substance: MENAQUINONE 6
  8. CYTOMEL [Concomitant]
     Active Substance: LIOTHYRONINE SODIUM
  9. NP THYROID [Concomitant]
     Active Substance: LEVOTHYROXINE\LIOTHYRONINE
  10. ALOE VERA LEAF [Concomitant]
     Active Substance: ALOE VERA LEAF
  11. PROBIOTIC WITH PREBIOTIC [Concomitant]
  12. VITAMINS [Concomitant]
     Active Substance: VITAMINS
  13. LYSINE [Concomitant]
     Active Substance: LYSINE
  14. VITAMIN D3 [Concomitant]
     Active Substance: CHOLECALCIFEROL
  15. VITAMIN C [Concomitant]
     Active Substance: ASCORBIC ACID
  16. PYRIDOXINE [Concomitant]
     Active Substance: PYRIDOXINE
  17. COENZYME Q10 [Concomitant]
     Active Substance: DIETARY SUPPLEMENT\UBIDECARENONE
  18. AMINO ACIDS [Concomitant]
     Active Substance: AMINO ACIDS
  19. VITAMIN B COMPLEX [Concomitant]
     Active Substance: CYANOCOBALAMIN\DEXPANTHENOL\NIACINAMIDE\PYRIDOXINE HYDROCHLORIDE\RIBOFLAVIN 5^-PHOSPHATE SODIUM\THIA
  20. FISH OIL [Concomitant]
     Active Substance: FISH OIL
  21. HYALURONIC ACID [Concomitant]
     Active Substance: HYALURONIC ACID
     Dosage: 40-80-400
  22. BIOTIN [Concomitant]
     Active Substance: BIOTIN
  23. ZINC [Concomitant]
     Active Substance: ZINC
  24. MAGNESIUM [Concomitant]
     Active Substance: MAGNESIUM
  25. HERBALS\SAW PALMETTO [Concomitant]
     Active Substance: HERBALS\SAW PALMETTO
  26. PREGNENOLONE [Concomitant]
     Active Substance: PREGNENOLONE
  27. VITAMIN B12 [Concomitant]
     Active Substance: CYANOCOBALAMIN
  28. DIETARY SUPPLEMENT\GRAPE SEED EXTRACT [Concomitant]
     Active Substance: DIETARY SUPPLEMENT\GRAPE SEED EXTRACT
  29. VITAMIN A + BETACAROTENE [Concomitant]

REACTIONS (3)
  - Vision blurred [Recovering/Resolving]
  - Eye pain [Recovering/Resolving]
  - Eye discharge [Unknown]
